FAERS Safety Report 4660192-6 (Version None)
Quarter: 2005Q2

REPORT INFORMATION
  Report Type: 
  Country: None (occurrence: None)
  Receive Date: 20050505
  Receipt Date: 20050208
  Transmission Date: 20051028
  Serious: No
  Sender: FDA-Public Use
  Company Number: 2004USFACT00145

PATIENT
  Age: 19 Year
  Sex: Female

DRUGS (1)
  1. FACTIVE [Suspect]
     Indication: RESPIRATORY TRACT INFECTION BACTERIAL
     Dosage: 320.00 MG, ORAL
     Route: 048
     Dates: start: 20041124, end: 20041128

REACTIONS (3)
  - ASTHENIA [None]
  - SOMNOLENCE [None]
  - URTICARIA [None]
